FAERS Safety Report 6315837-1 (Version None)
Quarter: 2009Q3

REPORT INFORMATION
  Report Type: 
  Country: None (occurrence: None)
  Receive Date: 20090820
  Receipt Date: 20080502
  Transmission Date: 20100115
  Serious: Yes (Other)
  Sender: FDA-Public Use
  Company Number: US-ASTRAZENECA-2007UW14133

PATIENT
  Age: 61 Year
  Sex: Female
  Weight: 73.5 kg

DRUGS (18)
  1. SEROQUEL [Suspect]
     Indication: BIPOLAR DISORDER
     Dosage: 25MG-400MG
     Route: 048
     Dates: start: 19990428
  2. SEROQUEL [Suspect]
     Indication: AGITATION
     Dosage: 25MG-400MG
     Route: 048
     Dates: start: 19990428
  3. SEROQUEL [Suspect]
     Indication: ANXIETY
     Dosage: 25MG-400MG
     Route: 048
     Dates: start: 19990428
  4. SEROQUEL [Suspect]
     Indication: PSYCHOTIC DISORDER
     Dosage: 25MG-400MG
     Route: 048
     Dates: start: 19990428
  5. SEROQUEL [Suspect]
     Indication: DELUSION
     Dosage: 25MG-400MG
     Route: 048
     Dates: start: 19990428
  6. SEROQUEL [Suspect]
     Dosage: 500
     Route: 048
     Dates: start: 20000101, end: 20060101
  7. SEROQUEL [Suspect]
     Dosage: 500
     Route: 048
     Dates: start: 20000101, end: 20060101
  8. SEROQUEL [Suspect]
     Dosage: 500
     Route: 048
     Dates: start: 20000101, end: 20060101
  9. SEROQUEL [Suspect]
     Dosage: 500
     Route: 048
     Dates: start: 20000101, end: 20060101
  10. SEROQUEL [Suspect]
     Dosage: 500
     Route: 048
     Dates: start: 20000101, end: 20060101
  11. RISPERDAL [Concomitant]
  12. DEPAKOTE [Concomitant]
     Dates: start: 19990428
  13. HALDOL [Concomitant]
     Dates: start: 20010313
  14. PREMARIN [Concomitant]
     Indication: HORMONE REPLACEMENT THERAPY
     Dosage: 0.125MG-1.25MG
     Dates: start: 19990428
  15. PREMARIN [Concomitant]
     Indication: MENOPAUSE
     Dosage: 0.125MG-1.25MG
     Dates: start: 19990428
  16. HYDROCHLOROTHIAZIDE [Concomitant]
     Dates: start: 19990428
  17. TRAZODONE HCL [Concomitant]
     Indication: ANXIETY
     Dosage: 12.5MG-150MG
     Dates: start: 20010401
  18. POTASSIUM CHLORIDE [Concomitant]
     Dosage: 20MEQ, EVERY 2 HOURS, 2 DOSES
     Route: 048
     Dates: start: 20060921

REACTIONS (5)
  - DIABETES MELLITUS INADEQUATE CONTROL [None]
  - METABOLIC SYNDROME [None]
  - NEUROPATHY PERIPHERAL [None]
  - TYPE 1 DIABETES MELLITUS [None]
  - TYPE 2 DIABETES MELLITUS [None]
